FAERS Safety Report 9207012 (Version 2)
Quarter: 2013Q4

REPORT INFORMATION
  Report Type: Spontaneous
  Country: US (occurrence: US)
  Receive Date: 20130403
  Receipt Date: 20131206
  Transmission Date: 20140711
  Serious: Yes (Other)
  Sender: FDA-Public Use
  Company Number: US-BAYER-2013-041426

PATIENT
  Age: 19 Year
  Sex: Female

DRUGS (6)
  1. YAZ [Suspect]
     Indication: ACNE
  2. YASMIN [Suspect]
     Indication: ACNE
  3. OCELLA [Suspect]
     Indication: ACNE
  4. PROZAC [Concomitant]
     Dosage: UNK
     Dates: start: 20060311
  5. DICLOFENAC [Concomitant]
     Dosage: UNK
     Dates: start: 20060311
  6. ZYRTEC [Concomitant]
     Dosage: UNK
     Dates: start: 20060311

REACTIONS (4)
  - Cholecystitis [None]
  - Injury [None]
  - Pain [None]
  - Pain [None]
